FAERS Safety Report 7146635-7 (Version None)
Quarter: 2010Q4

REPORT INFORMATION
  Report Type: 
  Country: None (occurrence: None)
  Receive Date: 20101208
  Receipt Date: 20101203
  Transmission Date: 20110411
  Serious: Yes (Hospitalization)
  Sender: FDA-Public Use
  Company Number: BR-ELI_LILLY_AND_COMPANY-BR201012001174

PATIENT
  Sex: Female

DRUGS (6)
  1. PEMETREXED [Suspect]
     Indication: LUNG NEOPLASM MALIGNANT
     Dosage: UNK, UNKNOWN
     Route: 065
     Dates: start: 20101123
  2. CARBOPLATIN [Suspect]
     Indication: LUNG NEOPLASM MALIGNANT
     Dosage: UNK, UNKNOWN
     Route: 065
     Dates: start: 20101123
  3. DEXAMETHASONE [Concomitant]
     Indication: SUPPLEMENTATION THERAPY
     Dosage: 8 MG, DAILY (1/D)
     Route: 065
     Dates: start: 20101122, end: 20101124
  4. FOLIC ACID [Concomitant]
     Indication: SUPPLEMENTATION THERAPY
     Dosage: 350 UG, UNKNOWN
     Route: 065
     Dates: start: 20101122
  5. VITAMIN B-12 [Concomitant]
     Indication: SUPPLEMENTATION THERAPY
     Dosage: 1000 IU, UNKNOWN
     Route: 030
     Dates: start: 20101122, end: 20101122
  6. MORFINE [Concomitant]
     Indication: PAIN
     Dosage: UNK, UNKNOWN
     Route: 065

REACTIONS (1)
  - DYSPNOEA [None]
